FAERS Safety Report 20895780 (Version 1)
Quarter: 2022Q2

REPORT INFORMATION
  Report Type: Spontaneous
  Country: US (occurrence: US)
  Receive Date: 20220531
  Receipt Date: 20220531
  Transmission Date: 20220721
  Serious: Yes (Other)
  Sender: FDA-Public Use
  Company Number: US-drreddys-LIT/USA/22/0150543

PATIENT
  Age: 64 Year
  Sex: Female

DRUGS (2)
  1. DOXORUBICIN HYDROCHLORIDE [Suspect]
     Active Substance: DOXORUBICIN HYDROCHLORIDE
     Indication: Chemotherapy
  2. DACARBAZINE [Suspect]
     Active Substance: DACARBAZINE
     Indication: Chemotherapy

REACTIONS (2)
  - Disease recurrence [Unknown]
  - Drug ineffective [Unknown]
